FAERS Safety Report 8870379 (Version 1)
Quarter: 2012Q4

REPORT INFORMATION
  Report Type: Spontaneous
  Country: US (occurrence: None)
  Receive Date: 20121026
  Receipt Date: 20121026
  Transmission Date: 20130627
  Serious: Yes (Other)
  Sender: FDA-Public Use
  Company Number: None

PATIENT
  Age: 59 Year
  Sex: Female

DRUGS (1)
  1. ACTEMRA [Suspect]
     Indication: RA
     Dosage: 540mg, q4wks, infusion
     Dates: start: 20120713, end: 20121011

REACTIONS (2)
  - Pruritus [None]
  - Pruritus [None]
